FAERS Safety Report 4617925-4 (Version None)
Quarter: 2005Q1

REPORT INFORMATION
  Report Type: 
  Country: None (occurrence: None)
  Receive Date: 20050322
  Receipt Date: 20050309
  Transmission Date: 20050727
  Serious: Yes (Life-Threatening, Hospitalization)
  Sender: FDA-Public Use
  Company Number: VIS10189.2005

PATIENT
  Age: 63 Year
  Sex: Female
  Weight: 62.1428 kg

DRUGS (10)
  1. MAGNESIUM CITRATE [Suspect]
     Indication: COLONOSCOPY
     Dosage: 17.45 G ONCE PO
     Route: 048
     Dates: start: 20050227, end: 20050227
  2. VISICOL [Suspect]
     Indication: COLONOSCOPY
     Dosage: 60 MG QD PO
     Route: 048
     Dates: start: 20050228, end: 20050228
  3. DULCOLAX [Suspect]
     Indication: COLONOSCOPY
     Dosage: 20 MG ONCE PO
     Route: 048
     Dates: start: 20050228, end: 20050228
  4. HYDROCHLOROTHIAZIDE [Suspect]
     Indication: DIURETIC THERAPY
     Dosage: 25 MG QD PO
     Route: 048
  5. HYDROCHLOROTHIAZIDE [Suspect]
     Indication: HYPERTENSION
     Dosage: 25 MG QD PO
     Route: 048
  6. PRINIVIL [Suspect]
     Indication: DIURETIC THERAPY
     Dosage: 20 MG QD PO
     Route: 048
  7. PRINIVIL [Suspect]
     Indication: HYPERTENSION
     Dosage: 20 MG QD PO
     Route: 048
  8. FOSAMAX [Concomitant]
  9. CALCIUM GLUCONATE [Concomitant]
  10. MULTI-VITAMIN [Concomitant]

REACTIONS (7)
  - BODY TEMPERATURE INCREASED [None]
  - DEHYDRATION [None]
  - EATING DISORDER [None]
  - HUNGER [None]
  - NAUSEA [None]
  - RENAL FAILURE [None]
  - VOMITING [None]
